FAERS Safety Report 21721669 (Version 1)
Quarter: 2022Q4

REPORT INFORMATION
  Report Type: Report from Study
  Country: EG (occurrence: EG)
  Receive Date: 20221213
  Receipt Date: 20221213
  Transmission Date: 20230113
  Serious: Yes (Other)
  Sender: FDA-Public Use
  Company Number: EG-002147023-NVSC2022EG263235

PATIENT
  Age: 68 Year
  Sex: Male

DRUGS (3)
  1. HYRIMOZ [Suspect]
     Active Substance: ADALIMUMAB-ADAZ
     Indication: Rheumatoid arthritis
     Dosage: 40 MG, Q2W,THEN 40 MG ONCE MONTHLY THEN 40  MG EVERY 21 DAYS.
     Route: 065
     Dates: start: 20220418, end: 20220904
  2. DOROFEN [Concomitant]
     Indication: Rheumatoid arthritis
     Dosage: UNK, QD (1- 2 TABLETS)
     Route: 065
     Dates: start: 2017
  3. FOLIC ACID [Concomitant]
     Active Substance: FOLIC ACID
     Indication: Rheumatoid arthritis
     Dosage: 1 DOSAGE FORM, QD- (1 TAB)
     Route: 065
     Dates: start: 2019

REACTIONS (5)
  - Gait disturbance [Not Recovered/Not Resolved]
  - C-reactive protein increased [Not Recovered/Not Resolved]
  - Arthritis [Not Recovered/Not Resolved]
  - Drug ineffective [Not Recovered/Not Resolved]
  - Feeling abnormal [Unknown]

NARRATIVE: CASE EVENT DATE: 20220701
